FAERS Safety Report 5515722-9 (Version None)
Quarter: 2007Q4

REPORT INFORMATION
  Report Type: 
  Country: None (occurrence: None)
  Receive Date: 20071114
  Receipt Date: 20071109
  Transmission Date: 20080405
  Serious: Yes (Hospitalization)
  Sender: FDA-Public Use
  Company Number: CA-SP-2007-03827

PATIENT
  Age: 80 Year
  Sex: Male

DRUGS (1)
  1. BCG  THERAPEUTICS [Suspect]
     Indication: BLADDER CANCER
     Dosage: FOR 6 MONTHS
     Route: 043

REACTIONS (6)
  - AORTIC ANEURYSM [None]
  - BOVINE TUBERCULOSIS [None]
  - MALAISE [None]
  - PNEUMONIA [None]
  - PYREXIA [None]
  - WEIGHT DECREASED [None]
